FAERS Safety Report 6135673-9 (Version None)
Quarter: 2009Q1

REPORT INFORMATION
  Report Type: 
  Country: None (occurrence: None)
  Receive Date: 20090327
  Receipt Date: 20090316
  Transmission Date: 20090719
  Serious: Yes (Hospitalization)
  Sender: FDA-Public Use
  Company Number: JP-PFIZER INC-2009188383

PATIENT

DRUGS (3)
  1. MIGLITOL [Suspect]
     Indication: TYPE 2 DIABETES MELLITUS
     Dosage: 150 MG
     Route: 048
  2. METFORMIN HCL [Suspect]
     Indication: TYPE 2 DIABETES MELLITUS
     Dosage: 750 MG
     Route: 048
  3. ACTOS [Suspect]
     Indication: TYPE 2 DIABETES MELLITUS
     Dosage: 15 MG
     Route: 048

REACTIONS (1)
  - HYPOGLYCAEMIA [None]
